FAERS Safety Report 9219209 (Version 1)
Quarter: 2013Q2

REPORT INFORMATION
  Report Type: Spontaneous
  Country: US (occurrence: US)
  Receive Date: 20130409
  Receipt Date: 20130409
  Transmission Date: 20140414
  Serious: No
  Sender: FDA-Public Use
  Company Number: US-BAYER-2013-043809

PATIENT
  Sex: Female

DRUGS (3)
  1. MIDOL EXTENDED RELIEF [Suspect]
  2. MUSCLE RELAXANTS [Concomitant]
  3. PAMPRIN [Concomitant]

REACTIONS (1)
  - Drug ineffective [None]
